FAERS Safety Report 12336321 (Version 1)
Quarter: 2016Q2

REPORT INFORMATION
  Report Type: Spontaneous
  Country: DK (occurrence: DK)
  Receive Date: 20160505
  Receipt Date: 20160505
  Transmission Date: 20160815
  Serious: Yes (Life-Threatening, Hospitalization, Disabling)
  Sender: FDA-Public Use
  Company Number: DK-009507513-1605DNK001491

PATIENT
  Age: 51 Year
  Sex: Female
  Weight: 87 kg

DRUGS (6)
  1. DESOGESTREL AND ETHINYL ESTRADIOL [Suspect]
     Active Substance: DESOGESTREL\ETHINYL ESTRADIOL
     Indication: CONTRACEPTION
     Dosage: DOSE: 1 TABLET DAILY
     Route: 048
     Dates: start: 20010101, end: 20160407
  2. FEMICEPT [Suspect]
     Active Substance: ETHINYL ESTRADIOL\LEVONORGESTREL
     Indication: CONTRACEPTION
     Dosage: STRENGTH:150MG LEVONORGESTREL/30MG ETHINYL ESTRADIOL
     Route: 048
     Dates: start: 1999, end: 20160227
  3. MICROGYN [Suspect]
     Active Substance: ETHINYL ESTRADIOL\LEVONORGESTREL
     Indication: CONTRACEPTION
     Dosage: DOSE: 1 TABLET DAILY
     Route: 048
     Dates: start: 20010101, end: 20160407
  4. CILEST [Suspect]
     Active Substance: ETHINYL ESTRADIOL\NORGESTIMATE
     Indication: CONTRACEPTION
     Dosage: DOSE: 1 TABLET DAILY
     Route: 048
     Dates: start: 20010101, end: 20160407
  5. METOPROLOLSUCCINAT HEXAL [Concomitant]
     Active Substance: METOPROLOL SUCCINATE
     Indication: HEART RATE IRREGULAR
     Dosage: UNK
     Dates: start: 201404
  6. MERCILON [Suspect]
     Active Substance: DESOGESTREL\ETHINYL ESTRADIOL
     Indication: CONTRACEPTION
     Dosage: DOSE: 1 TABLET DAILY
     Route: 048
     Dates: start: 20010101, end: 20160407

REACTIONS (2)
  - Cerebral thrombosis [Recovered/Resolved with Sequelae]
  - Thalamic infarction [Recovered/Resolved with Sequelae]

NARRATIVE: CASE EVENT DATE: 20160227
